FAERS Safety Report 24284369 (Version 7)
Quarter: 2025Q3

REPORT INFORMATION
  Report Type: Report from Study
  Country: US (occurrence: US)
  Receive Date: 20240905
  Receipt Date: 20250829
  Transmission Date: 20251020
  Serious: Yes (Hospitalization, Other)
  Sender: NOVARTIS
  Company Number: US-002147023-NVSC2024US175627

PATIENT
  Age: 51 Year
  Sex: Male

DRUGS (5)
  1. KESIMPTA [Suspect]
     Active Substance: OFATUMUMAB
     Indication: Multiple sclerosis
     Dosage: 20 MG, QW
     Route: 058
     Dates: start: 20240812
  2. KESIMPTA [Suspect]
     Active Substance: OFATUMUMAB
     Dosage: 20MG/0.4ML, QMO
     Route: 065
  3. AMLODIPINE [Concomitant]
     Active Substance: AMLODIPINE BESYLATE
     Indication: Product used for unknown indication
     Route: 065
  4. LOSARTAN [Concomitant]
     Active Substance: LOSARTAN
     Indication: Product used for unknown indication
     Route: 065
  5. TRAMADOL [Concomitant]
     Active Substance: TRAMADOL
     Indication: Product used for unknown indication
     Route: 065

REACTIONS (10)
  - Pulmonary embolism [Recovering/Resolving]
  - Pneumonia [Unknown]
  - Injury [Unknown]
  - Erythema [Unknown]
  - Dyspnoea [Unknown]
  - Device physical property issue [Unknown]
  - Device malfunction [Unknown]
  - Drug dose omission by device [Unknown]
  - Needle issue [Unknown]
  - Product supply issue [Unknown]

NARRATIVE: CASE EVENT DATE: 20240819
